FAERS Safety Report 8606848 (Version 3)
Quarter: 2014Q1

REPORT INFORMATION
  Report Type: Spontaneous
  Country: US (occurrence: US)
  Receive Date: 20120611
  Receipt Date: 20140124
  Transmission Date: 20141002
  Serious: Yes (Hospitalization, Disabling)
  Sender: FDA-Public Use
  Company Number: US-ASTRAZENECA-2012SE35290

PATIENT
  Age: 39 Year
  Sex: Female
  Weight: 63.5 kg

DRUGS (46)
  1. NEXIUM [Suspect]
     Indication: DYSPEPSIA
     Dosage: TWO TIMES A DAY
     Route: 048
  2. NEXIUM [Suspect]
     Indication: GASTROOESOPHAGEAL REFLUX DISEASE
     Dosage: TWO TIMES A DAY
     Route: 048
  3. NEXIUM [Suspect]
     Indication: ULCER
     Dosage: TWO TIMES A DAY
     Route: 048
  4. NEXIUM [Suspect]
     Indication: DYSPEPSIA
     Route: 048
     Dates: start: 2000, end: 2007
  5. NEXIUM [Suspect]
     Indication: GASTROOESOPHAGEAL REFLUX DISEASE
     Route: 048
     Dates: start: 2000, end: 2007
  6. NEXIUM [Suspect]
     Indication: ULCER
     Route: 048
     Dates: start: 2000, end: 2007
  7. NEXIUM [Suspect]
     Indication: DYSPEPSIA
     Route: 048
     Dates: start: 200909, end: 201212
  8. NEXIUM [Suspect]
     Indication: GASTROOESOPHAGEAL REFLUX DISEASE
     Route: 048
     Dates: start: 200909, end: 201212
  9. NEXIUM [Suspect]
     Indication: ULCER
     Route: 048
     Dates: start: 200909, end: 201212
  10. NEXIUM [Suspect]
     Indication: DYSPEPSIA
     Route: 048
     Dates: start: 20090921
  11. NEXIUM [Suspect]
     Indication: GASTROOESOPHAGEAL REFLUX DISEASE
     Route: 048
     Dates: start: 20090921
  12. NEXIUM [Suspect]
     Indication: ULCER
     Route: 048
     Dates: start: 20090921
  13. PRILOSEC [Suspect]
     Indication: DYSPEPSIA
     Route: 048
     Dates: start: 1997, end: 2000
  14. PRILOSEC [Suspect]
     Indication: GASTROOESOPHAGEAL REFLUX DISEASE
     Route: 048
     Dates: start: 1997, end: 2000
  15. PRILOSEC [Suspect]
     Indication: DYSPEPSIA
     Route: 048
     Dates: start: 1998, end: 2001
  16. PRILOSEC [Suspect]
     Indication: GASTROOESOPHAGEAL REFLUX DISEASE
     Route: 048
     Dates: start: 1998, end: 2001
  17. PRILOSEC OTC [Suspect]
     Route: 048
     Dates: start: 201212
  18. PREVACID [Concomitant]
     Indication: DYSPEPSIA
     Dates: start: 2006, end: 200607
  19. PREVACID [Concomitant]
     Indication: GASTROOESOPHAGEAL REFLUX DISEASE
     Dates: start: 2006, end: 200607
  20. C BLOCK [Concomitant]
  21. ZANTAC [Concomitant]
  22. TUMS [Concomitant]
  23. ROLAIDS [Concomitant]
  24. VYTORIN [Concomitant]
  25. HYDROXYCHLOROQUINE [Concomitant]
  26. HYDROXYCHLOROQUINE [Concomitant]
     Dates: start: 20091013
  27. CENESTIN [Concomitant]
     Dates: start: 20060103
  28. CITALOPRAM [Concomitant]
  29. ATENOLOL [Concomitant]
     Route: 048
  30. AVAPRO [Concomitant]
  31. POTASSIUM [Concomitant]
  32. CALTRATE [Concomitant]
     Dosage: 600+ D, 2 TAB DAILY
  33. LORAZEPAM [Concomitant]
     Dates: start: 20091113
  34. LYRICA [Concomitant]
  35. EVOXAC [Concomitant]
  36. RESTASIS [Concomitant]
     Dosage: 1-2 DROPS 2 X DAILY
     Route: 047
  37. RECLAST [Concomitant]
     Dosage: EVERY 2 YEAR
  38. TRAMADOL [Concomitant]
  39. NUCYNTA [Concomitant]
     Dates: start: 20100325
  40. VITAMIN D [Concomitant]
  41. VITAMIN D [Concomitant]
     Dates: start: 20091112
  42. METHOCARBAMOL [Concomitant]
     Dates: start: 20110318
  43. CIPROFLOXACIN HCL [Concomitant]
     Dates: start: 20090903
  44. CRESTOR [Concomitant]
     Dates: start: 20060126
  45. CRESTOR [Concomitant]
     Route: 048
     Dates: start: 20060505
  46. EFFEXOR [Concomitant]
     Dates: start: 20060125

REACTIONS (20)
  - Osteoporosis [Unknown]
  - Bone pain [Unknown]
  - Exostosis [Unknown]
  - Multiple fractures [Unknown]
  - Calcium deficiency [Unknown]
  - Pain in extremity [Unknown]
  - Osteoarthritis [Unknown]
  - Osteopenia [Unknown]
  - Foot fracture [Unknown]
  - Vitamin D deficiency [Unknown]
  - Rotator cuff syndrome [Unknown]
  - Osteonecrosis [Unknown]
  - Joint dislocation [Unknown]
  - Musculoskeletal pain [Unknown]
  - Sciatic nerve injury [Unknown]
  - Sjogren^s syndrome [Unknown]
  - Bone disorder [Unknown]
  - Arthropathy [Unknown]
  - Epicondylitis [Unknown]
  - Abdominal pain upper [Unknown]
